FAERS Safety Report 4519949-4 (Version None)
Quarter: 2004Q4

REPORT INFORMATION
  Report Type: 
  Country: None (occurrence: None)
  Receive Date: 20041201
  Receipt Date: 20041201
  Transmission Date: 20050328
  Serious: Yes (Death, Hospitalization)
  Sender: FDA-Public Use
  Company Number: None

PATIENT
  Age: 74 Year
  Sex: Male
  Weight: 87.4 kg

DRUGS (13)
  1. SIMVASTATIN [Suspect]
     Indication: HYPERLIPIDAEMIA
     Dosage: 40MG,  40NG QPM, ORAL
     Route: 048
  2. KETOROLAC TROMETHAMINE [Concomitant]
  3. HEPARIN [Concomitant]
  4. HUMALOG [Concomitant]
  5. DEXTROSE [Concomitant]
  6. INSULIN REG HUMAN 100 U/ML INJ NOVOLIN R [Concomitant]
  7. OMEPRAZOLE [Concomitant]
  8. CITALOPRAM [Concomitant]
  9. MECLIZINE [Concomitant]
  10. SIMVASTATIN [Concomitant]
  11. INSULIN NPH NOVOLIN HUMAN INJ [Concomitant]
  12. ASPIRIN (ENTERIC-COATED) TAB,EC [Concomitant]
  13. ACARBOSE [Concomitant]

REACTIONS (1)
  - RHABDOMYOLYSIS [None]
